FAERS Safety Report 9638462 (Version 3)
Quarter: 2014Q1

REPORT INFORMATION
  Report Type: Report from Study
  Country: JP (occurrence: JP)
  Receive Date: 20131022
  Receipt Date: 20140227
  Transmission Date: 20141002
  Serious: Yes (Other)
  Sender: FDA-Public Use
  Company Number: JP-JNJFOC-20131010812

PATIENT
  Age: 65 Year
  Sex: Female
  Weight: 42 kg

DRUGS (21)
  1. SIMPONI [Suspect]
     Indication: RHEUMATOID ARTHRITIS
     Route: 058
     Dates: start: 20120821, end: 20120821
  2. SIMPONI [Suspect]
     Indication: RHEUMATOID ARTHRITIS
     Route: 058
     Dates: start: 20120501, end: 20120501
  3. SIMPONI [Suspect]
     Indication: RHEUMATOID ARTHRITIS
     Route: 058
     Dates: start: 20120529, end: 20120529
  4. SIMPONI [Suspect]
     Indication: RHEUMATOID ARTHRITIS
     Route: 058
     Dates: start: 20120626, end: 20120626
  5. SIMPONI [Suspect]
     Indication: RHEUMATOID ARTHRITIS
     Route: 058
     Dates: start: 20120723, end: 20120723
  6. SIMPONI [Suspect]
     Indication: RHEUMATOID ARTHRITIS
     Route: 058
     Dates: start: 20130430
  7. SIMPONI [Suspect]
     Indication: RHEUMATOID ARTHRITIS
     Route: 058
     Dates: start: 20120918, end: 20120918
  8. SIMPONI [Suspect]
     Indication: RHEUMATOID ARTHRITIS
     Route: 058
     Dates: start: 20121218, end: 20121218
  9. SIMPONI [Suspect]
     Indication: RHEUMATOID ARTHRITIS
     Route: 058
     Dates: start: 20130115, end: 20130115
  10. SIMPONI [Suspect]
     Indication: RHEUMATOID ARTHRITIS
     Route: 058
     Dates: start: 20130212, end: 20130212
  11. SIMPONI [Suspect]
     Indication: RHEUMATOID ARTHRITIS
     Route: 058
     Dates: start: 20130326, end: 20130326
  12. METHOTREXATE [Suspect]
     Indication: RHEUMATOID ARTHRITIS
     Route: 065
     Dates: start: 20110412, end: 20121015
  13. METHOTREXATE [Suspect]
     Indication: RHEUMATOID ARTHRITIS
     Route: 065
     Dates: start: 20121204, end: 20130430
  14. LOXONIN [Concomitant]
     Indication: ARTHRITIS
     Route: 065
  15. LOXONIN [Concomitant]
     Indication: ARTHRITIS
     Route: 065
  16. LOXONIN [Concomitant]
     Indication: RHEUMATOID ARTHRITIS
     Route: 065
  17. LOXONIN [Concomitant]
     Indication: RHEUMATOID ARTHRITIS
     Route: 065
  18. TAKEPRON [Concomitant]
     Indication: GASTROOESOPHAGEAL REFLUX DISEASE
     Route: 048
  19. LAC-B [Concomitant]
     Indication: ENTEROCOLITIS
     Route: 048
  20. MUCOSTA [Concomitant]
     Indication: GASTRITIS
     Route: 048
  21. FOLIAMIN [Concomitant]
     Indication: RHEUMATOID ARTHRITIS
     Route: 048

REACTIONS (3)
  - Pneumonia [Recovered/Resolved]
  - White blood cell count decreased [Recovered/Resolved]
  - Upper respiratory tract infection [Recovered/Resolved]
